FAERS Safety Report 8423659-0 (Version None)
Quarter: 2012Q2

REPORT INFORMATION
  Report Type: 
  Country: None (occurrence: None)
  Receive Date: 20120608
  Receipt Date: 20120607
  Transmission Date: 20120825
  Serious: Yes (Death, Other)
  Sender: FDA-Public Use
  Company Number: PHHY2012JP037037

PATIENT
  Age: 77 Year
  Sex: Male
  Weight: 42.4 kg

DRUGS (2)
  1. TACROLIMUS [Suspect]
     Indication: JOINT SWELLING
     Dosage: 1 MG, UNK
     Dates: start: 20100401, end: 20100701
  2. METHOTREXATE [Suspect]
     Indication: RHEUMATOID ARTHRITIS
     Dosage: 6 MG, QW
     Dates: end: 20100101

REACTIONS (6)
  - BURKITT'S LYMPHOMA [None]
  - PLEURAL EFFUSION [None]
  - DYSPNOEA [None]
  - LUNG NEOPLASM [None]
  - RESPIRATORY DISTRESS [None]
  - LYMPHADENOPATHY MEDIASTINAL [None]
